FAERS Safety Report 8802537 (Version 1)
Quarter: 2012Q4

REPORT INFORMATION
  Report Type: 
  Country: US (occurrence: US)
  Receive Date: 20120921
  Receipt Date: 20120921
  Transmission Date: 20130627
  Serious: No
  Sender: FDA-Public Use
  Company Number: US-009507513-1209USA007795

PATIENT
  Sex: Male

DRUGS (4)
  1. ZOCOR [Suspect]
     Indication: CEREBROVASCULAR ACCIDENT PROPHYLAXIS
     Dosage: 40 mg, qd
     Route: 048
     Dates: start: 201208
  2. LOPRESSOR [Concomitant]
  3. WARFARIN [Concomitant]
  4. ALBUTEROL [Concomitant]

REACTIONS (1)
  - Increased upper airway secretion [Not Recovered/Not Resolved]
